FAERS Safety Report 7213498-0 (Version None)
Quarter: 2011Q1

REPORT INFORMATION
  Report Type: 
  Country: None (occurrence: None)
  Receive Date: 20110106
  Receipt Date: 20110104
  Transmission Date: 20110831
  Serious: Yes (Disabling)
  Sender: FDA-Public Use
  Company Number: US-PFIZER INC-2011002195

PATIENT
  Sex: Male
  Weight: 82 kg

DRUGS (4)
  1. ZOLOFT [Suspect]
     Indication: ANXIETY
     Dosage: 200 MG, 1X/DAY
     Route: 048
     Dates: start: 20010101
  2. ATIVAN [Concomitant]
     Indication: ANXIETY
     Dosage: UNK
  3. ATIVAN [Concomitant]
     Indication: PANIC ATTACK
  4. ZOLOFT [Suspect]
     Indication: DEPRESSION

REACTIONS (3)
  - SKIN FISSURES [None]
  - ACCIDENT AT WORK [None]
  - DRY MOUTH [None]
